FAERS Safety Report 8803990 (Version 1)
Quarter: 2012Q4

REPORT INFORMATION
  Report Type: 
  Country: US (occurrence: US)
  Receive Date: 20120924
  Receipt Date: 20120924
  Transmission Date: 20130627
  Serious: No
  Sender: FDA-Public Use
  Company Number: US-PFIZER INC-2012231314

PATIENT
  Age: 69 Year
  Sex: Female

DRUGS (3)
  1. INLYTA [Suspect]
     Indication: LUNG NEOPLASM
     Dosage: 5 mg, 2x/day
     Dates: start: 20120906
  2. INLYTA [Suspect]
     Indication: HEPATIC NEOPLASM
  3. INLYTA [Suspect]
     Indication: RENAL CANCER

REACTIONS (5)
  - Nausea [Unknown]
  - Decreased appetite [Unknown]
  - Fatigue [Unknown]
  - Activities of daily living impaired [Unknown]
  - Gastrointestinal disorder [Unknown]
